FAERS Safety Report 21272878 (Version 1)
Quarter: 2022Q3

REPORT INFORMATION
  Report Type: Spontaneous
  Country: US (occurrence: None)
  Receive Date: 20220831
  Receipt Date: 20220831
  Transmission Date: 20221027
  Serious: Yes (Hospitalization, Other)
  Sender: FDA-Public Use
  Company Number: US-Hikma Pharmaceuticals USA Inc.-US-H14001-22-02205

PATIENT
  Age: 80 Year
  Sex: Male
  Weight: 88.3 kg

DRUGS (14)
  1. ABIRATERONE [Suspect]
     Active Substance: ABIRATERONE
     Indication: Prostate cancer
     Route: 065
     Dates: start: 20220526, end: 20220812
  2. PREDNISONE [Suspect]
     Active Substance: PREDNISONE
     Indication: Prostate cancer
     Route: 065
     Dates: start: 20220526, end: 20220812
  3. TALAZOPARIB [Suspect]
     Active Substance: TALAZOPARIB
     Indication: Prostate cancer
     Route: 065
     Dates: start: 20220526, end: 20220812
  4. METOPROLOL [Concomitant]
     Active Substance: METOPROLOL
     Indication: Hypertension
     Dosage: UNKNOWN
     Route: 048
     Dates: start: 20220707
  5. METOPROLOL [Concomitant]
     Active Substance: METOPROLOL
     Dosage: UNKNOWN
     Route: 042
     Dates: start: 202208
  6. ROSUVASTATIN [Concomitant]
     Active Substance: ROSUVASTATIN
     Indication: Hypertension
     Dosage: UNKNOWN
     Route: 048
     Dates: start: 20220707
  7. WELLBUTRIN [Concomitant]
     Active Substance: BUPROPION HYDROCHLORIDE
     Indication: Major depression
     Dosage: UNKNOWN
     Route: 048
     Dates: start: 2012
  8. CONCERTA [Concomitant]
     Active Substance: METHYLPHENIDATE HYDROCHLORIDE
     Indication: Attention deficit hyperactivity disorder
     Dosage: UNKNOWN
     Route: 048
     Dates: start: 1972
  9. ZOFRAN [Concomitant]
     Active Substance: ONDANSETRON HYDROCHLORIDE
     Indication: Nausea
     Dosage: UNKNOWN
     Route: 048
     Dates: start: 20220809
  10. FINASTERIDE [Concomitant]
     Active Substance: FINASTERIDE
     Indication: Benign prostatic hyperplasia
     Dosage: UNKNOWN
     Route: 048
     Dates: start: 2021
  11. TAMSULOSIN [Concomitant]
     Active Substance: TAMSULOSIN
     Indication: Benign prostatic hyperplasia
     Dosage: UNKNOWN
     Route: 048
     Dates: start: 2019
  12. LOSARTAN [Concomitant]
     Active Substance: LOSARTAN
     Indication: Hypertension
     Dosage: UNKNOWN
     Route: 048
     Dates: start: 2012
  13. HUMALOG [Concomitant]
     Active Substance: INSULIN LISPRO
     Indication: Diabetes mellitus
     Dosage: UNKNOWN
     Route: 058
     Dates: start: 1992
  14. AMLODIPINE [Concomitant]
     Active Substance: AMLODIPINE BESYLATE
     Indication: Hypertension
     Dosage: UNKNOWN
     Route: 048
     Dates: start: 20220715

REACTIONS (3)
  - Atrial flutter [Unknown]
  - Depression [Unknown]
  - Suicidal ideation [Unknown]

NARRATIVE: CASE EVENT DATE: 20220812
